FAERS Safety Report 9194146 (Version 2)
Quarter: 2013Q2

REPORT INFORMATION
  Report Type: Spontaneous
  Country: GB (occurrence: GB)
  Receive Date: 20130327
  Receipt Date: 20130404
  Transmission Date: 20140414
  Serious: Yes (Hospitalization)
  Sender: FDA-Public Use
  Company Number: GB-VERTEX PHARMACEUTICALS INC.-2013-004144

PATIENT
  Age: 30 Year
  Sex: Male

DRUGS (5)
  1. INCIVO [Suspect]
     Indication: HEPATITIS C
     Route: 048
  2. INCIVO [Suspect]
     Route: 048
  3. HEROIN [Suspect]
     Indication: PRODUCT USED FOR UNKNOWN INDICATION
     Dosage: UNK
     Route: 065
  4. COPEGUS [Concomitant]
     Dosage: UNK
     Route: 065
  5. PEGASYS [Concomitant]
     Dosage: UNK
     Route: 065

REACTIONS (2)
  - Overdose [Recovered/Resolved]
  - Loss of consciousness [Recovered/Resolved]
